FAERS Safety Report 9363599 (Version 1)
Quarter: 2013Q2

REPORT INFORMATION
  Report Type: Spontaneous
  Country: CA (occurrence: None)
  Receive Date: 20130618
  Receipt Date: 20130618
  Transmission Date: 20140414
  Serious: Yes (Other)
  Sender: FDA-Public Use
  Company Number: 2013AP006006

PATIENT
  Sex: Female

DRUGS (1)
  1. APO-DOXAZOSIN [Suspect]

REACTIONS (4)
  - Cardiac fibrillation [None]
  - Palpitations [None]
  - Anxiety [None]
  - Insomnia [None]
